FAERS Safety Report 24350163 (Version 1)
Quarter: 2024Q3

REPORT INFORMATION
  Report Type: Spontaneous
  Country: US (occurrence: None)
  Receive Date: 20240921
  Receipt Date: 20240921
  Transmission Date: 20241016
  Serious: Yes (Hospitalization)
  Sender: Public
  Company Number: None

PATIENT
  Age: 67 Year
  Sex: Male
  Weight: 108 kg

DRUGS (1)
  1. CYTARABINE [Suspect]
     Active Substance: CYTARABINE
     Dates: end: 20240827

REACTIONS (4)
  - Arthralgia [None]
  - Arthritis bacterial [None]
  - Immunodeficiency [None]
  - Joint effusion [None]

NARRATIVE: CASE EVENT DATE: 20240919
